FAERS Safety Report 10211334 (Version 1)
Quarter: 2014Q2

REPORT INFORMATION
  Report Type: Spontaneous
  Country: MY (occurrence: MY)
  Receive Date: 20140602
  Receipt Date: 20140602
  Transmission Date: 20141212
  Serious: Yes (Other)
  Sender: FDA-Public Use
  Company Number: MY-GLAXOSMITHKLINE-B0998261A

PATIENT
  Age: 56 Year
  Sex: Female

DRUGS (1)
  1. ZINNAT [Suspect]
     Indication: PNEUMONIA
     Dosage: 500MG PER DAY
     Route: 048

REACTIONS (2)
  - Angioedema [Recovered/Resolved]
  - Urticaria [Recovered/Resolved]
